FAERS Safety Report 10602589 (Version 1)
Quarter: 2014Q4

REPORT INFORMATION
  Report Type: Report from Study
  Country: US (occurrence: US)
  Receive Date: 20141124
  Receipt Date: 20141124
  Transmission Date: 20150529
  Serious: Yes (Death, Hospitalization)
  Sender: FDA-Public Use
  Company Number: US-BAYER-2014-170527

PATIENT
  Age: 70 Year
  Sex: Female

DRUGS (5)
  1. HEPARIN [Interacting]
     Active Substance: HEPARIN SODIUM
     Dosage: BOLUS
     Route: 042
  2. ASPIRIN. [Interacting]
     Active Substance: ASPIRIN
     Indication: ANTIPLATELET THERAPY
     Dosage: UNK
  3. TISSUE PLASMINOGEN ACTIVATOR, RECOMBINANT [Interacting]
     Active Substance: ALTEPLASE
     Indication: THROMBOLYSIS
  4. ASPIRIN. [Suspect]
     Active Substance: ASPIRIN
     Indication: ANTIPLATELET THERAPY
     Dosage: UNK
  5. TISSUE PLASMINOGEN ACTIVATOR, RECOMBINANT [Interacting]
     Active Substance: ALTEPLASE
     Indication: ISCHAEMIC STROKE
     Route: 042

REACTIONS (7)
  - Cerebral haemorrhage [None]
  - CNS ventriculitis [None]
  - Death [Fatal]
  - Hemiparesis [None]
  - Neurological decompensation [None]
  - Labelled drug-drug interaction medication error [None]
  - Mental impairment [None]
